FAERS Safety Report 19122768 (Version 1)
Quarter: 2021Q2

REPORT INFORMATION
  Report Type: Spontaneous
  Country: US (occurrence: US)
  Receive Date: 20210412
  Receipt Date: 20210412
  Transmission Date: 20210717
  Serious: No
  Sender: FDA-Public Use
  Company Number: US-CORCEPT THERAPEUTICS INC.-US-2020CRT000207

PATIENT
  Age: 56 Year
  Sex: Female
  Weight: 102.4 kg

DRUGS (6)
  1. KORLYM [Suspect]
     Active Substance: MIFEPRISTONE
     Indication: CUSHING^S SYNDROME
     Dosage: 300 MG, QD
     Route: 048
     Dates: start: 20200212, end: 202002
  2. TRINTELLIX [Concomitant]
     Active Substance: VORTIOXETINE HYDROBROMIDE
     Indication: PRODUCT USED FOR UNKNOWN INDICATION
     Dosage: UNK
  3. SPIRONOLACTONE. [Suspect]
     Active Substance: SPIRONOLACTONE
     Indication: PERIPHERAL SWELLING
     Dosage: UNK
  4. SYNTHROID [Suspect]
     Active Substance: LEVOTHYROXINE SODIUM
     Indication: HYPOTHYROIDISM
     Dosage: UNK
     Dates: start: 202005
  5. KORLYM [Suspect]
     Active Substance: MIFEPRISTONE
     Dosage: 600 MG, QD
     Route: 048
     Dates: start: 202002
  6. LISINOPRIL. [Concomitant]
     Active Substance: LISINOPRIL
     Indication: PRODUCT USED FOR UNKNOWN INDICATION
     Dosage: UNK

REACTIONS (20)
  - Hot flush [Recovered/Resolved]
  - Fatigue [Recovering/Resolving]
  - Urticaria [Recovering/Resolving]
  - Stress [Unknown]
  - Oedema peripheral [Recovering/Resolving]
  - Anxiety [Unknown]
  - Hormone level abnormal [Unknown]
  - Skin striae [Unknown]
  - Nocturia [Recovering/Resolving]
  - Hypothyroidism [Unknown]
  - Blood glucose decreased [Unknown]
  - Sleep apnoea syndrome [Unknown]
  - Hypersensitivity [Unknown]
  - Skin atrophy [Unknown]
  - Weight increased [Unknown]
  - Swelling [Recovering/Resolving]
  - Pain [Unknown]
  - Dry skin [Unknown]
  - Thirst [Unknown]
  - Insomnia [Recovering/Resolving]

NARRATIVE: CASE EVENT DATE: 2020
